FAERS Safety Report 24811719 (Version 1)
Quarter: 2025Q1

REPORT INFORMATION
  Report Type: Spontaneous
  Country: US (occurrence: None)
  Receive Date: 20250105
  Receipt Date: 20250105
  Transmission Date: 20250408
  Serious: Yes (unspecified)
  Sender: FDA-CTU
  Company Number: None

PATIENT
  Age: 24 Year
  Sex: Female

DRUGS (1)
  1. POVIDONE-IODINE [Suspect]
     Active Substance: POVIDONE-IODINE
     Indication: Skin odour abnormal
     Dates: start: 20250105, end: 20250105

REACTIONS (1)
  - Rash [None]

NARRATIVE: CASE EVENT DATE: 20250105
